FAERS Safety Report 23907700 (Version 1)
Quarter: 2024Q2

REPORT INFORMATION
  Report Type: Spontaneous
  Country: RO (occurrence: RO)
  Receive Date: 20240528
  Receipt Date: 20240528
  Transmission Date: 20240716
  Serious: Yes (Disabling)
  Sender: FDA-Public Use
  Company Number: RO-ABBVIE-5773219

PATIENT
  Age: 38 Year
  Sex: Male
  Weight: 92 kg

DRUGS (2)
  1. HUMIRA [Suspect]
     Active Substance: ADALIMUMAB
     Indication: Ankylosing spondylitis
     Dosage: 1 PRE-FILLED SYRINGE?FORM STRENGTH: 40MG
     Route: 058
     Dates: start: 2012, end: 20240430
  2. XARELTO [Concomitant]
     Active Substance: RIVAROXABAN
     Indication: Product used for unknown indication
     Route: 065

REACTIONS (9)
  - Loss of personal independence in daily activities [Recovering/Resolving]
  - Joint stiffness [Recovering/Resolving]
  - Drug ineffective [Recovering/Resolving]
  - Dysstasia [Recovering/Resolving]
  - Mobility decreased [Recovering/Resolving]
  - C-reactive protein increased [Unknown]
  - Myalgia [Recovering/Resolving]
  - Ankylosing spondylitis [Recovering/Resolving]
  - Musculoskeletal stiffness [Recovering/Resolving]

NARRATIVE: CASE EVENT DATE: 20240501
